FAERS Safety Report 12591833 (Version 1)
Quarter: 2016Q3

REPORT INFORMATION
  Report Type: Spontaneous
  Country: US (occurrence: US)
  Receive Date: 20160726
  Receipt Date: 20160726
  Transmission Date: 20161109
  Serious: No
  Sender: FDA-Public Use
  Company Number: US-UNITED THERAPEUTICS-UNT-2016-003121

PATIENT
  Age: 70 Year
  Sex: Female
  Weight: 88.44 kg

DRUGS (6)
  1. ORENITRAM [Suspect]
     Active Substance: TREPROSTINIL
     Dosage: 0.875 MG, TID
     Route: 048
  2. XARELTO [Concomitant]
     Active Substance: RIVAROXABAN
     Indication: PRODUCT USED FOR UNKNOWN INDICATION
     Route: 065
  3. ORENITRAM [Suspect]
     Active Substance: TREPROSTINIL
     Indication: PULMONARY ARTERIAL HYPERTENSION
     Dosage: 0.75 MG, TID
     Route: 048
     Dates: start: 20160104
  4. ORENITRAM [Suspect]
     Active Substance: TREPROSTINIL
     Dosage: TOTAL 2.625MG DAILY
     Route: 048
  5. ADEMPAS [Concomitant]
     Active Substance: RIOCIGUAT
     Indication: PRODUCT USED FOR UNKNOWN INDICATION
     Route: 065
  6. ORENITRAM [Suspect]
     Active Substance: TREPROSTINIL
     Dosage: 0.825 MG, TID
     Route: 048

REACTIONS (13)
  - Headache [Recovered/Resolved]
  - Diarrhoea [Unknown]
  - Discomfort [Unknown]
  - Vomiting [Recovered/Resolved]
  - Limb discomfort [Unknown]
  - Dizziness [Recovered/Resolved]
  - Weight increased [Unknown]
  - Myalgia [Unknown]
  - Back pain [Unknown]
  - Tension headache [Unknown]
  - Dyspnoea [Unknown]
  - Pain in extremity [Unknown]
  - Fatigue [Unknown]

NARRATIVE: CASE EVENT DATE: 201602
